FAERS Safety Report 25842521 (Version 1)
Quarter: 2025Q3

REPORT INFORMATION
  Report Type: Spontaneous
  Country: US (occurrence: US)
  Receive Date: 20250924
  Receipt Date: 20250924
  Transmission Date: 20251021
  Serious: No
  Sender: MYLAN
  Company Number: US-MYLANLABS-2025M1079111

PATIENT

DRUGS (1)
  1. ESTRADIOL TRANSDERMAL SYSTEM [Suspect]
     Active Substance: ESTRADIOL
     Indication: Product used for unknown indication
     Dosage: 0.0375 MILLIGRAM, QD (PER DAY, TWICE-WEEKLY)

REACTIONS (6)
  - Application site burn [Recovered/Resolved]
  - Pain in extremity [Recovered/Resolved]
  - Product substitution issue [Recovered/Resolved]
  - Application site rash [Recovered/Resolved]
  - Breast pain [Recovered/Resolved]
  - Abdominal pain upper [Recovered/Resolved]
